FAERS Safety Report 25892824 (Version 2)
Quarter: 2025Q4

REPORT INFORMATION
  Report Type: Report from Study
  Country: US (occurrence: US)
  Receive Date: 20251007
  Receipt Date: 20251015
  Transmission Date: 20260117
  Serious: Yes (Death)
  Sender: JOHNSON AND JOHNSON
  Company Number: US-JNJFOC-20251003914

PATIENT
  Age: 73 Year
  Sex: Male

DRUGS (1)
  1. CARVYKTI [Suspect]
     Active Substance: CILTACABTAGENE AUTOLEUCEL
     Indication: Plasma cell myeloma
     Dosage: TOTAL NUMBER OF CELLS ADMINISTERED: 34.02; TOTAL CELLS EXPONENT VALUE 6
     Route: 065
     Dates: start: 2024

REACTIONS (4)
  - Immune effector cell-associated neurotoxicity syndrome [Fatal]
  - Enterocolitis [Fatal]
  - Bacterial infection [Fatal]
  - Malnutrition [Fatal]
